FAERS Safety Report 9255719 (Version 3)
Quarter: 2013Q2

REPORT INFORMATION
  Report Type: Report from Study
  Country: US (occurrence: US)
  Receive Date: 20130425
  Receipt Date: 20130522
  Transmission Date: 20140414
  Serious: Yes (Hospitalization)
  Sender: FDA-Public Use
  Company Number: US-UCBSA-083352

PATIENT
  Age: 20 Year
  Sex: Male
  Weight: 57 kg

DRUGS (8)
  1. CIMZIA [Suspect]
     Indication: CROHN^S DISEASE
     Route: 058
     Dates: start: 20100909, end: 201009
  2. CIMZIA [Suspect]
     Indication: CROHN^S DISEASE
     Route: 058
     Dates: start: 20100930, end: 2010
  3. CIMZIA [Suspect]
     Indication: CROHN^S DISEASE
     Route: 058
     Dates: start: 20101027
  4. ENTOCORT [Concomitant]
     Indication: CROHN^S DISEASE
     Dosage: 1 TAB THRICE DAILY
     Dates: start: 20080829
  5. ENTOCORT [Concomitant]
     Indication: CROHN^S DISEASE
     Dosage: DECREASED TO TWICE DAILY
     Dates: start: 20120511
  6. ASACOL [Concomitant]
     Indication: CROHN^S DISEASE
     Dosage: 600 MG
     Dates: start: 20100212
  7. CIPRO [Concomitant]
     Indication: CROHN^S DISEASE
     Dates: start: 20081208
  8. HUMERA [Concomitant]
     Indication: CROHN^S DISEASE
     Dates: start: 20100909

REACTIONS (4)
  - Abdominal abscess [Recovered/Resolved]
  - Pyrexia [Recovered/Resolved]
  - Abdominal pain [Recovered/Resolved]
  - Diarrhoea [Recovered/Resolved]
